FAERS Safety Report 17851770 (Version 2)
Quarter: 2020Q2

REPORT INFORMATION
  Report Type: Report from Study
  Country: US (occurrence: US)
  Receive Date: 20200602
  Receipt Date: 20200622
  Transmission Date: 20200714
  Serious: Yes (Other)
  Sender: FDA-Public Use
  Company Number: US-MYLANLABS-2018M1039297

PATIENT
  Age: 69 Year
  Sex: Male
  Weight: 106.12 kg

DRUGS (2)
  1. COUMADIN [Suspect]
     Active Substance: WARFARIN SODIUM
     Indication: HEART VALVE REPLACEMENT
     Dosage: 2.5 MG PER DAY, WITH AN EXTRA HALF TABLET 4 DAYS A WEEK
     Route: 048
  2. GLATIRAMER ACETATE INJECTION [Suspect]
     Active Substance: GLATIRAMER ACETATE
     Indication: RELAPSING-REMITTING MULTIPLE SCLEROSIS
     Dosage: 40 MG 3 TIMES PER WEEK
     Route: 058
     Dates: start: 20180528

REACTIONS (11)
  - Injection site haemorrhage [Recovering/Resolving]
  - Injection site atrophy [Not Recovered/Not Resolved]
  - Injection site discolouration [Recovering/Resolving]
  - Injection site bruising [Unknown]
  - Injection site erythema [Recovering/Resolving]
  - Injection site rash [Recovering/Resolving]
  - Incorrect dose administered [Unknown]
  - Wrong technique in product usage process [Unknown]
  - Cellulitis [Unknown]
  - Injection site mass [Recovering/Resolving]
  - Injection site pain [Recovering/Resolving]

NARRATIVE: CASE EVENT DATE: 20180528
